FAERS Safety Report 15360211 (Version 1)
Quarter: 2018Q3

REPORT INFORMATION
  Report Type: Spontaneous
  Country: US (occurrence: US)
  Receive Date: 20180907
  Receipt Date: 20180907
  Transmission Date: 20181010
  Serious: No
  Sender: FDA-Public Use
  Company Number: US-TOLMAR, INC.-2017US016465

PATIENT
  Sex: Male

DRUGS (1)
  1. ELIGARD [Suspect]
     Active Substance: LEUPROLIDE ACETATE
     Indication: PRODUCT USED FOR UNKNOWN INDICATION
     Dosage: 45 MG, (6 MONTH DOSE)
     Route: 058
     Dates: start: 20171027

REACTIONS (2)
  - Intercepted medication error [Unknown]
  - Syringe issue [Unknown]

NARRATIVE: CASE EVENT DATE: 20171027
